FAERS Safety Report 20848799 (Version 1)
Quarter: 2022Q2

REPORT INFORMATION
  Report Type: Spontaneous
  Country: US (occurrence: US)
  Receive Date: 20220519
  Receipt Date: 20220519
  Transmission Date: 20220721
  Serious: No
  Sender: FDA-Public Use
  Company Number: US-drreddys-SPO/USA/22/0149691

PATIENT
  Age: 32 Year
  Sex: Female

DRUGS (1)
  1. ZENATANE [Suspect]
     Active Substance: ISOTRETINOIN
     Indication: Product used for unknown indication
     Dosage: RMA ISSUE DATE: 30 NOVEMBER 2021 07:34:09 PM, 31 JANUARY 2022 12:31:25 PM, 28 FEBRUARY 2022 03:21:59

REACTIONS (2)
  - Arthralgia [Unknown]
  - Headache [Unknown]
